FAERS Safety Report 5411987-2 (Version None)
Quarter: 2007Q3

REPORT INFORMATION
  Report Type: 
  Country: None (occurrence: None)
  Receive Date: 20070809
  Receipt Date: 20070724
  Transmission Date: 20080115
  Serious: Yes (Hospitalization)
  Sender: FDA-Public Use
  Company Number: 100#08#2007-02866

PATIENT
  Age: 45 Year
  Sex: Male

DRUGS (1)
  1. METHOTREXATE [Suspect]
     Indication: PSORIATIC ARTHROPATHY
     Dosage: 12.5 TO 15MG/WEEK ORAL
     Route: 048
     Dates: start: 19821201

REACTIONS (2)
  - PNEUMONIA CRYPTOCOCCAL [None]
  - PSEUDOMEMBRANOUS COLITIS [None]
